FAERS Safety Report 8896636 (Version 1)
Quarter: 2012Q4

REPORT INFORMATION
  Report Type: Spontaneous
  Country: US (occurrence: None)
  Receive Date: 20121102
  Receipt Date: 20121102
  Transmission Date: 20130627
  Serious: Yes (Other)
  Sender: FDA-Public Use
  Company Number: FK201203177

PATIENT
  Age: 18 Year
  Sex: Male

DRUGS (1)
  1. MORPHINE SULFATE [Suspect]
     Indication: DRUG ABUSE
     Dosage: 2 Dosage forms, crushed and snorted 2 lines, Nasal
     Route: 045

REACTIONS (8)
  - Troponin increased [None]
  - Transaminases increased [None]
  - Deafness [None]
  - Tachycardia [None]
  - Hypotension [None]
  - Renal impairment [None]
  - Mental status changes [None]
  - Drug screen positive [None]
